FAERS Safety Report 16135846 (Version 3)
Quarter: 2020Q2

REPORT INFORMATION
  Report Type: Spontaneous
  Country: CH (occurrence: CH)
  Receive Date: 20190329
  Receipt Date: 20200630
  Transmission Date: 20200713
  Serious: Yes (Hospitalization)
  Sender: FDA-Public Use
  Company Number: CH-ASTRAZENECA-2019SE45668

PATIENT
  Age: 59 Year
  Sex: Female

DRUGS (7)
  1. ABILIFY [Interacting]
     Active Substance: ARIPIPRAZOLE
     Route: 048
     Dates: end: 20190310
  2. DULOXETINE. [Interacting]
     Active Substance: DULOXETINE
     Route: 048
     Dates: start: 201810, end: 20190310
  3. DULOXETINE. [Interacting]
     Active Substance: DULOXETINE
     Dosage: UNKNOWN DOSE, DAILY
     Route: 048
     Dates: end: 201810
  4. SEROQUEL XR [Suspect]
     Active Substance: QUETIAPINE FUMARATE
     Route: 048
     Dates: end: 20190310
  5. LATUDA [Concomitant]
     Active Substance: LURASIDONE HYDROCHLORIDE
     Route: 065
     Dates: start: 20190319, end: 20190321
  6. LATUDA [Concomitant]
     Active Substance: LURASIDONE HYDROCHLORIDE
     Route: 065
     Dates: start: 20190321, end: 20190408
  7. LAMOTRIGINE. [Concomitant]
     Active Substance: LAMOTRIGINE
     Route: 065
     Dates: start: 20190416

REACTIONS (2)
  - Neurotoxicity [Recovering/Resolving]
  - Overdose [Recovered/Resolved]

NARRATIVE: CASE EVENT DATE: 2019
